FAERS Safety Report 20669513 (Version 1)
Quarter: 2022Q2

REPORT INFORMATION
  Report Type: Spontaneous
  Country: US (occurrence: None)
  Receive Date: 20220403
  Receipt Date: 20220403
  Transmission Date: 20220721
  Serious: Yes (Disabling)
  Sender: FDA-Public Use
  Company Number: None

PATIENT
  Age: 47 Year
  Sex: Female
  Weight: 74.7 kg

DRUGS (6)
  1. LEVAQUIN [Suspect]
     Active Substance: LEVOFLOXACIN
     Indication: Sinusitis
     Dosage: FREQUENCY : EVERY 12 HOURS;?
     Route: 048
  2. ZOLOFT [Concomitant]
     Active Substance: SERTRALINE HYDROCHLORIDE
  3. ATIVAN [Concomitant]
     Active Substance: LORAZEPAM
  4. AMBIEN [Concomitant]
     Active Substance: ZOLPIDEM TARTRATE
  5. MAGNESIUM [Concomitant]
     Active Substance: MAGNESIUM
  6. multi, d [Concomitant]

REACTIONS (9)
  - Pain [None]
  - Mobility decreased [None]
  - Ligament injury [None]
  - Ligament rupture [None]
  - Temporomandibular joint syndrome [None]
  - Gait disturbance [None]
  - Weight bearing difficulty [None]
  - Feeling abnormal [None]
  - Quality of life decreased [None]

NARRATIVE: CASE EVENT DATE: 20211116
